FAERS Safety Report 5374866-5 (Version None)
Quarter: 2007Q2

REPORT INFORMATION
  Report Type: 
  Country: None (occurrence: None)
  Receive Date: 20070629
  Receipt Date: 20070627
  Transmission Date: 20071010
  Serious: Yes (Hospitalization)
  Sender: FDA-Public Use
  Company Number: B0477146A

PATIENT
  Age: 72 Year
  Sex: Female

DRUGS (1)
  1. AUGMENTIN '125' [Suspect]
     Indication: BRONCHITIS
     Dosage: 2TAB TWICE PER DAY
     Route: 048
     Dates: start: 20060207, end: 20060209

REACTIONS (3)
  - ABDOMINAL PAIN [None]
  - MALAISE [None]
  - NAUSEA [None]
